FAERS Safety Report 5133035-4 (Version None)
Quarter: 2006Q4

REPORT INFORMATION
  Report Type: 
  Country: None (occurrence: None)
  Receive Date: 20061017
  Receipt Date: 20061002
  Transmission Date: 20070319
  Serious: Yes (Hospitalization, Other)
  Sender: FDA-Public Use
  Company Number: CA200610000914

PATIENT
  Sex: Male

DRUGS (3)
  1. HUMALOG [Suspect]
     Indication: DIABETES MELLITUS
     Dosage: 3/D, SUBCUTANEOUS; SEE IMAGE
     Route: 058
     Dates: end: 20060927
  2. HUMALOG [Suspect]
     Indication: DIABETES MELLITUS
     Dosage: 3/D, SUBCUTANEOUS; SEE IMAGE
     Route: 058
     Dates: start: 20060930
  3. LANTUS [Concomitant]

REACTIONS (2)
  - LOCALISED INFECTION [None]
  - THROMBOSIS [None]
